FAERS Safety Report 9489947 (Version 2)
Quarter: 2013Q3

REPORT INFORMATION
  Report Type: Spontaneous
  Country: IT (occurrence: IT)
  Receive Date: 20130829
  Receipt Date: 20130906
  Transmission Date: 20140515
  Serious: Yes (Other)
  Sender: FDA-Public Use
  Company Number: PHHY2013IT091290

PATIENT
  Age: 55 Year
  Sex: Male
  Weight: 60 kg

DRUGS (5)
  1. TACROLIMUS [Suspect]
     Indication: LIVER TRANSPLANT REJECTION
     Dosage: 4 MG, PER DAY
  2. TACROLIMUS [Suspect]
     Dosage: 12 MG, PER DAY
  3. TACROLIMUS [Suspect]
     Dosage: (DOSE REDUCED UNSPECIFIED)
  4. MYCOPHENOLIC ACID [Concomitant]
     Dosage: 440 MG, PER DAY
  5. PREDNISONE [Concomitant]
     Dosage: 15 MG, PER DAY

REACTIONS (9)
  - Aggression [Recovered/Resolved]
  - Agitation [Recovered/Resolved]
  - Irritability [Recovered/Resolved]
  - Impulsive behaviour [Recovered/Resolved]
  - Abnormal behaviour [Recovered/Resolved]
  - Self injurious behaviour [Recovered/Resolved]
  - Mental status changes [Recovered/Resolved]
  - Confusional state [Recovered/Resolved]
  - Accidental overdose [Unknown]
